FAERS Safety Report 7810295-X (Version None)
Quarter: 2011Q4

REPORT INFORMATION
  Report Type: 
  Country: None (occurrence: None)
  Receive Date: 20111012
  Receipt Date: 20111005
  Transmission Date: 20120403
  Serious: Yes (Death)
  Sender: FDA-Public Use
  Company Number: DE-ROCHE-800984

PATIENT
  Sex: Male
  Weight: 70 kg

DRUGS (7)
  1. VEMURAFENIB [Suspect]
     Indication: METASTATIC MALIGNANT MELANOMA
     Dosage: DATE OF LAST DOSE PRIOR TO SAE:02 SEP 2011
     Route: 048
     Dates: start: 20110824, end: 20110902
  2. BISOPROLOL [Concomitant]
     Dosage: DOSE:5, UNIT:UNSPECIFIED
  3. SIMVASTATIN [Concomitant]
  4. TORSEMIDE [Concomitant]
     Dosage: DOSE:10,UNIT:UNSPECIFIED
  5. LERCADIP [Concomitant]
     Dosage: REPORTED AS 'LERCAPID 10'
  6. RAMIPRIL [Concomitant]
  7. ASPIRIN [Concomitant]

REACTIONS (1)
  - INTRA-ABDOMINAL HAEMORRHAGE [None]
